FAERS Safety Report 12183130 (Version 1)
Quarter: 2016Q1

REPORT INFORMATION
  Report Type: Spontaneous
  Country: US (occurrence: None)
  Receive Date: 20160315
  Receipt Date: 20160315
  Transmission Date: 20160526
  Serious: No
  Sender: FDA-Public Use
  Company Number: None

PATIENT
  Age: 37 Year
  Sex: Female
  Weight: 52.16 kg

DRUGS (7)
  1. EFFEXOR XR [Suspect]
     Active Substance: VENLAFAXINE HYDROCHLORIDE
     Indication: ANXIETY
     Route: 048
     Dates: start: 20160307, end: 20160314
  2. WELLBUTRIN [Concomitant]
     Active Substance: BUPROPION HYDROCHLORIDE
  3. EFFEXOR XR [Suspect]
     Active Substance: VENLAFAXINE HYDROCHLORIDE
     Indication: ATTENTION DEFICIT/HYPERACTIVITY DISORDER
     Route: 048
     Dates: start: 20160307, end: 20160314
  4. EFFEXOR XR [Suspect]
     Active Substance: VENLAFAXINE HYDROCHLORIDE
     Indication: DEPRESSION
     Route: 048
     Dates: start: 20160307, end: 20160314
  5. TIZANADINE [Concomitant]
  6. TRUNUVIGIL [Concomitant]
  7. IB PROFRIN [Concomitant]

REACTIONS (10)
  - Anorgasmia [None]
  - Anxiety [None]
  - Feeling abnormal [None]
  - Dysphonia [None]
  - Headache [None]
  - Dyspnoea [None]
  - Euphoric mood [None]
  - Abnormal behaviour [None]
  - Dizziness [None]
  - Laziness [None]

NARRATIVE: CASE EVENT DATE: 20160307
